FAERS Safety Report 21447482 (Version 2)
Quarter: 2022Q4

REPORT INFORMATION
  Report Type: Spontaneous
  Country: ES (occurrence: ES)
  Receive Date: 20221012
  Receipt Date: 20221120
  Transmission Date: 20230113
  Serious: Yes (Hospitalization, Other)
  Sender: FDA-Public Use
  Company Number: ES-NOVARTISPH-NVSC2022ES226569

PATIENT
  Age: 69 Year
  Sex: Male
  Weight: 67.5 kg

DRUGS (14)
  1. DEXAMETHASONE [Suspect]
     Active Substance: DEXAMETHASONE
     Indication: Abdominal pain
     Dosage: 4 MG, QD
     Route: 048
     Dates: start: 20220905
  2. DEXAMETHASONE [Suspect]
     Active Substance: DEXAMETHASONE
     Indication: Plasma cell myeloma
  3. CETUXIMAB [Suspect]
     Active Substance: CETUXIMAB
     Indication: Colorectal cancer metastatic
     Dosage: 895 MG, BIW
     Route: 042
     Dates: start: 20220128, end: 20220906
  4. APIXABAN [Suspect]
     Active Substance: APIXABAN
     Indication: Cerebrovascular accident prophylaxis
     Dosage: 5 MG EVERY 12 HOURS
     Route: 048
     Dates: start: 20220429, end: 20220919
  5. ENCORAFENIB [Suspect]
     Active Substance: ENCORAFENIB
     Indication: Colorectal cancer metastatic
     Dosage: 300 MG, QD
     Route: 048
     Dates: start: 20220128, end: 20220919
  6. METAMIZOLE MAGNESIUM [Suspect]
     Active Substance: METAMIZOLE MAGNESIUM
     Indication: Abdominal pain
     Dosage: 150 MG (FREQUENCY AS PER NEEDED)
     Route: 048
     Dates: start: 20220905, end: 20220919
  7. FENTANYL [Concomitant]
     Active Substance: FENTANYL
     Indication: Pain prophylaxis
     Dosage: (50 MG) 72 HOURS
     Route: 062
     Dates: start: 20220610
  8. MAGNESIUM [Concomitant]
     Active Substance: MAGNESIUM
     Indication: Prophylaxis
     Dosage: 53 MG
     Route: 048
     Dates: start: 20220217
  9. CALCIUM CARBONATE [Concomitant]
     Active Substance: CALCIUM CARBONATE
     Indication: Hypocalcaemia
     Dosage: (500 MG) 12 HOURS
     Route: 048
     Dates: start: 20220711
  10. LORAZEPAM [Concomitant]
     Active Substance: LORAZEPAM
     Indication: Insomnia
     Dosage: (1 MG) 24 HOURS
     Route: 048
     Dates: start: 20220610
  11. ACETAMINOPHEN [Concomitant]
     Active Substance: ACETAMINOPHEN
     Indication: Pain prophylaxis
     Dosage: (1 G) AS NEEDED
     Route: 048
     Dates: start: 20220610
  12. TAMSULOSIN [Concomitant]
     Active Substance: TAMSULOSIN
     Indication: Benign prostatic hyperplasia
     Dosage: 0.5 MG/0.4 MG/ 24 HOURS
     Route: 048
     Dates: start: 202201
  13. MORPHINE [Concomitant]
     Active Substance: MORPHINE
     Indication: Pain prophylaxis
     Dosage: 10 MG, PRN
     Route: 048
     Dates: start: 20220610
  14. OMEPRAZOLE [Concomitant]
     Active Substance: OMEPRAZOLE
     Indication: Gastritis prophylaxis
     Dosage: (20 MG) 24 HOURS
     Route: 048
     Dates: start: 20220610

REACTIONS (1)
  - Upper gastrointestinal haemorrhage [Recovered/Resolved]

NARRATIVE: CASE EVENT DATE: 20220919
